FAERS Safety Report 15301160 (Version 1)
Quarter: 2018Q3

REPORT INFORMATION
  Report Type: Spontaneous
  Country: US (occurrence: US)
  Receive Date: 20180821
  Receipt Date: 20180821
  Transmission Date: 20181010
  Serious: No
  Sender: FDA-Public Use
  Company Number: US-JNJFOC-20180725585

PATIENT
  Age: 64 Year
  Sex: Female
  Weight: 52.16 kg

DRUGS (7)
  1. WOMENS ROGAINE UNSCENTED [Suspect]
     Active Substance: MINOXIDIL
     Indication: DIFFUSE ALOPECIA
     Dosage: HALF CAPFUL
     Route: 061
     Dates: start: 20180627, end: 20180716
  2. LIPITOR [Concomitant]
     Active Substance: ATORVASTATIN CALCIUM
     Indication: BLOOD CHOLESTEROL INCREASED
     Route: 065
  3. SYNTHROID [Concomitant]
     Active Substance: LEVOTHYROXINE SODIUM
     Indication: HYPOTHYROIDISM
     Dosage: 1X PER DAY FOR 6 DAYS A WEEK NOT ON SUNDAY
     Route: 065
  4. WOMENS ROGAINE UNSCENTED [Suspect]
     Active Substance: MINOXIDIL
     Indication: ALOPECIA
     Dosage: HALF CAPFUL
     Route: 061
     Dates: start: 20180627, end: 20180716
  5. WOMENS ROGAINE UNSCENTED [Suspect]
     Active Substance: MINOXIDIL
     Indication: ALOPECIA
     Dosage: HALF CAPFUL
     Route: 061
     Dates: start: 20180719
  6. CICLOPIROX. [Concomitant]
     Active Substance: CICLOPIROX
     Indication: PRODUCT USED FOR UNKNOWN INDICATION
     Route: 061
  7. WOMENS ROGAINE UNSCENTED [Suspect]
     Active Substance: MINOXIDIL
     Indication: DIFFUSE ALOPECIA
     Dosage: HALF CAPFUL
     Route: 061
     Dates: start: 20180719

REACTIONS (4)
  - Dandruff [Recovered/Resolved]
  - Alopecia [Not Recovered/Not Resolved]
  - Pruritus [Recovered/Resolved]
  - Product use in unapproved indication [Unknown]

NARRATIVE: CASE EVENT DATE: 20180627
